FAERS Safety Report 6032812-5 (Version None)
Quarter: 2009Q1

REPORT INFORMATION
  Report Type: 
  Country: None (occurrence: None)
  Receive Date: 20090107
  Receipt Date: 20090107
  Transmission Date: 20090719
  Serious: No
  Sender: FDA-Public Use
  Company Number: None

PATIENT
  Age: 26 Year
  Sex: Female
  Weight: 77.1115 kg

DRUGS (2)
  1. MIRENA [Suspect]
     Indication: CONTRACEPTION
     Dosage: 5 YEARS INTRA-UTERINE
     Route: 015
     Dates: start: 20050105, end: 20080511
  2. . [Concomitant]

REACTIONS (2)
  - ABORTION INCOMPLETE [None]
  - ABORTION SPONTANEOUS [None]
